FAERS Safety Report 8284671-8 (Version None)
Quarter: 2012Q2

REPORT INFORMATION
  Report Type: 
  Country: None (occurrence: None)
  Receive Date: 20120413
  Receipt Date: 20120220
  Transmission Date: 20120825
  Serious: No
  Sender: FDA-Public Use
  Company Number: US-ASTRAZENECA-2011SE74452

PATIENT
  Age: 90 Year
  Sex: Female

DRUGS (1)
  1. NEXIUM [Suspect]
     Indication: PEPTIC ULCER
     Route: 048

REACTIONS (7)
  - OFF LABEL USE [None]
  - ARTHRITIS [None]
  - ACTIVITIES OF DAILY LIVING IMPAIRED [None]
  - ABDOMINAL PAIN [None]
  - DIARRHOEA [None]
  - ULCER [None]
  - DRUG DOSE OMISSION [None]
